FAERS Safety Report 6922783-9 (Version None)
Quarter: 2010Q3

REPORT INFORMATION
  Report Type: 
  Country: None (occurrence: None)
  Receive Date: 20100813
  Receipt Date: 20100813
  Transmission Date: 20110219
  Serious: Yes (Death)
  Sender: FDA-Public Use
  Company Number: None

PATIENT
  Age: 83 Year
  Sex: Female

DRUGS (1)
  1. SODIUM POLYSTYRENE SULFONATE [Suspect]
     Indication: HYPERKALAEMIA
     Dosage: 120G -60 +30+30
     Dates: start: 20030716, end: 20030717

REACTIONS (4)
  - INTESTINAL ISCHAEMIA [None]
  - METABOLIC ACIDOSIS [None]
  - PNEUMATOSIS INTESTINALIS [None]
  - RESPIRATORY DISORDER [None]
